FAERS Safety Report 6650540-X (Version None)
Quarter: 2010Q1

REPORT INFORMATION
  Report Type: 
  Country: None (occurrence: None)
  Receive Date: 20100325
  Receipt Date: 20100302
  Transmission Date: 20100710
  Serious: No
  Sender: FDA-Public Use
  Company Number: US-BIOGENIDEC-2010BI007346

PATIENT
  Age: 56 Year
  Sex: Female

DRUGS (8)
  1. AVONEX [Suspect]
     Indication: MULTIPLE SCLEROSIS
     Route: 030
     Dates: start: 20000501, end: 20001101
  2. AVONEX [Suspect]
     Route: 030
     Dates: start: 20100129
  3. ANTI-SEIZURE MEDICATION [Concomitant]
  4. NEURONTIN [Concomitant]
     Indication: PAIN IN EXTREMITY
  5. FENTANYL [Concomitant]
     Indication: PAIN IN EXTREMITY
  6. PROVIGIL [Concomitant]
     Indication: PAIN IN EXTREMITY
  7. VALIUM [Concomitant]
     Indication: PAIN IN EXTREMITY
  8. HYDROCODONE [Concomitant]
     Indication: PAIN IN EXTREMITY

REACTIONS (5)
  - DIARRHOEA [None]
  - DISORIENTATION [None]
  - HEADACHE [None]
  - INCOHERENT [None]
  - VOMITING [None]
